FAERS Safety Report 5559772-5 (Version None)
Quarter: 2007Q4

REPORT INFORMATION
  Report Type: 
  Country: None (occurrence: None)
  Receive Date: 20071214
  Receipt Date: 20071011
  Transmission Date: 20080405
  Serious: No
  Sender: FDA-Public Use
  Company Number: US-ABBOTT-07P-163-0420715-00

PATIENT
  Sex: Male
  Weight: 77.634 kg

DRUGS (10)
  1. HUMIRA [Suspect]
     Indication: CROHN'S DISEASE
     Route: 058
     Dates: start: 20070101, end: 20070901
  2. HUMIRA [Suspect]
     Route: 058
  3. HUMIRA [Suspect]
     Route: 058
  4. BUDESONIDE [Concomitant]
     Indication: CROHN'S DISEASE
     Dates: start: 20070921
  5. MESALAMINE [Concomitant]
     Indication: CROHN'S DISEASE
     Dates: start: 20070921
  6. JANUVIA [Concomitant]
     Indication: DIABETES MELLITUS
     Dates: start: 20060101
  7. PIOGLITAZONE [Concomitant]
     Indication: DIABETES MELLITUS
     Dates: start: 20060101
  8. INEGY [Concomitant]
     Indication: PROPHYLAXIS
     Dates: start: 20070901
  9. INEGY [Concomitant]
     Indication: BLOOD CHOLESTEROL
  10. INEGY [Concomitant]
     Indication: DIABETES MELLITUS

REACTIONS (4)
  - ABDOMINAL TENDERNESS [None]
  - CROHN'S DISEASE [None]
  - PALLOR [None]
  - PYREXIA [None]
